FAERS Safety Report 9431167 (Version 2)
Quarter: 2013Q3

REPORT INFORMATION
  Report Type: Spontaneous
  Country: US (occurrence: US)
  Receive Date: 20130730
  Receipt Date: 20130904
  Transmission Date: 20140515
  Serious: Yes (Other)
  Sender: FDA-Public Use
  Company Number: US-TEVA-421275USA

PATIENT
  Age: 85 Year
  Sex: Female

DRUGS (1)
  1. NABUMETONE [Suspect]
     Dosage: 1500 MILLIGRAM DAILY;
     Dates: start: 20130624, end: 20130626

REACTIONS (1)
  - Hypoacusis [Not Recovered/Not Resolved]
